FAERS Safety Report 21213485 (Version 1)
Quarter: 2022Q3

REPORT INFORMATION
  Report Type: Spontaneous
  Country: CO (occurrence: CO)
  Receive Date: 20220815
  Receipt Date: 20220815
  Transmission Date: 20221026
  Serious: Yes (Other)
  Sender: FDA-Public Use
  Company Number: CO-PFIZER INC-PV202200040920

PATIENT
  Sex: Female

DRUGS (1)
  1. ENBREL [Suspect]
     Active Substance: ETANERCEPT
     Indication: Rheumatoid arthritis
     Dosage: 50 MILLIGRAM
     Route: 058
     Dates: start: 2017

REACTIONS (7)
  - Onychalgia [Unknown]
  - Dysstasia [Unknown]
  - Arthralgia [Unknown]
  - Pain [Unknown]
  - Osteoarthritis [Unknown]
  - Osteoporosis [Unknown]
  - Sensitivity to weather change [Unknown]
